FAERS Safety Report 24655593 (Version 1)
Quarter: 2024Q4

REPORT INFORMATION
  Report Type: Spontaneous
  Country: US (occurrence: US)
  Receive Date: 20241123
  Receipt Date: 20241123
  Transmission Date: 20250115
  Serious: No
  Sender: Kenvue
  Company Number: US-KENVUE-20241101855

PATIENT
  Age: 14 Year
  Sex: Male

DRUGS (1)
  1. CETIRIZINE HYDROCHLORIDE [Suspect]
     Active Substance: CETIRIZINE HYDROCHLORIDE
     Indication: Lip swelling
     Dosage: TWICE DAILY
     Route: 065

REACTIONS (2)
  - Off label use [Unknown]
  - Prescribed overdose [Unknown]
